FAERS Safety Report 8911888 (Version 2)
Quarter: 2013Q1

REPORT INFORMATION
  Report Type: Spontaneous
  Country: US (occurrence: US)
  Receive Date: 20121116
  Receipt Date: 20130106
  Transmission Date: 20140127
  Serious: No
  Sender: FDA-Public Use
  Company Number: US-JNJFOC-20121013597

PATIENT
  Sex: Male

DRUGS (9)
  1. INVEGA SUSTENNA [Suspect]
     Indication: SCHIZOPHRENIA
     Route: 030
  2. INVEGA SUSTENNA [Suspect]
     Indication: SCHIZOPHRENIA
     Route: 030
  3. INVEGA SUSTENNA [Suspect]
     Indication: SCHIZOPHRENIA
     Route: 030
     Dates: start: 201206, end: 201209
  4. PROZAC [Concomitant]
     Indication: DEPRESSION
     Route: 065
  5. ABILIFY [Concomitant]
     Indication: HALLUCINATION
     Dosage: 5-10 MG
     Route: 065
     Dates: start: 201204, end: 201210
  6. RISOERIDONE [Concomitant]
     Indication: HALLUCINATION
     Route: 048
  7. LEXAPRO [Concomitant]
     Indication: DEPRESSION
     Route: 065
  8. SUBOXONE [Concomitant]
     Indication: DRUG DEPENDENCE
     Dosage: 8 MG - 12 MG, 0.5 MG TID
     Route: 065
  9. TESTOSTERONE [Concomitant]
     Indication: FATIGUE
     Dosage: APPROXIMATELY 2 YEARS
     Route: 065

REACTIONS (2)
  - Enuresis [Recovered/Resolved]
  - Nocturnal emission [Recovered/Resolved]
